FAERS Safety Report 7009354-3 (Version None)
Quarter: 2010Q3

REPORT INFORMATION
  Report Type: 
  Country: None (occurrence: None)
  Receive Date: 20100921
  Receipt Date: 20100913
  Transmission Date: 20110219
  Serious: Yes (Other)
  Sender: FDA-Public Use
  Company Number: 2010JP005407

PATIENT
  Age: 70 Year
  Sex: Male

DRUGS (12)
  1. PROGRAF [Suspect]
     Indication: ALLOGENIC BONE MARROW TRANSPLANTATION THERAPY
  2. VINCRISTINE [Concomitant]
  3. ETOPOSIDE [Concomitant]
  4. PREDNISOLONE [Concomitant]
  5. ADRIAMYCIN PFS [Concomitant]
  6. FLUDARABINE PHOSPHATE [Concomitant]
  7. BUSULFAN (BUSULFAN) [Concomitant]
  8. METHYLPREDNISOLONE [Concomitant]
  9. CYCLOSPORINE [Concomitant]
  10. MYCOPHENOLATE MOFETIL [Concomitant]
  11. PENTOSTATIN (PENTOSTATIN) [Concomitant]
  12. METHOTREXATE [Concomitant]

REACTIONS (4)
  - BLOOD BETA-D-GLUCAN INCREASED [None]
  - GASTROINTESTINAL DISORDER [None]
  - PNEUMONIA [None]
  - THROMBOTIC MICROANGIOPATHY [None]
